FAERS Safety Report 13954073 (Version 1)
Quarter: 2017Q3

REPORT INFORMATION
  Report Type: Spontaneous
  Country: US (occurrence: None)
  Receive Date: 20170909
  Receipt Date: 20170909
  Transmission Date: 20171128
  Serious: Yes (Hospitalization)
  Sender: FDA-Public Use
  Company Number: None

PATIENT
  Age: 50 Year
  Sex: Female

DRUGS (14)
  1. FUROSEMIDE. [Concomitant]
     Active Substance: FUROSEMIDE
  2. TIZANIDINE. [Concomitant]
     Active Substance: TIZANIDINE
  3. ALBUTEROL. [Concomitant]
     Active Substance: ALBUTEROL
  4. SILDENAFIL. [Concomitant]
     Active Substance: SILDENAFIL
  5. PANTOPRAZOLE [Concomitant]
     Active Substance: PANTOPRAZOLE
  6. EPOPROSTENOL. [Concomitant]
     Active Substance: EPOPROSTENOL
  7. TRACLEER [Suspect]
     Active Substance: BOSENTAN
     Indication: PULMONARY ARTERIAL HYPERTENSION
     Route: 048
     Dates: start: 201412
  8. GABAPENTIN. [Concomitant]
     Active Substance: GABAPENTIN
  9. LORAZEPAM. [Concomitant]
     Active Substance: LORAZEPAM
  10. MVI [Concomitant]
     Active Substance: VITAMINS
  11. ZOLPIDEM [Concomitant]
     Active Substance: ZOLPIDEM\ZOLPIDEM TARTRATE
  12. FLUTICASONE. [Concomitant]
     Active Substance: FLUTICASONE
  13. FLUOXETINE [Concomitant]
     Active Substance: FLUOXETINE HYDROCHLORIDE
  14. XCL [Concomitant]

REACTIONS (5)
  - Drug abuse [None]
  - Vomiting [None]
  - Diarrhoea [None]
  - Muscle spasms [None]
  - Back pain [None]

NARRATIVE: CASE EVENT DATE: 20170825
